FAERS Safety Report 8279501-4 (Version None)
Quarter: 2012Q2

REPORT INFORMATION
  Report Type: 
  Country: None (occurrence: None)
  Receive Date: 20120412
  Receipt Date: 20120326
  Transmission Date: 20120825
  Serious: No
  Sender: FDA-Public Use
  Company Number: US-ASTRAZENECA-2012SE12474

PATIENT
  Age: 39 Year
  Sex: Male
  Weight: 84.4 kg

DRUGS (3)
  1. NEXIUM [Suspect]
     Indication: GASTROOESOPHAGEAL REFLUX DISEASE
     Route: 048
  2. PRILOSEC [Suspect]
     Indication: GASTROOESOPHAGEAL REFLUX DISEASE
     Route: 048
  3. PRILOSEC OTC [Suspect]
     Indication: GASTROOESOPHAGEAL REFLUX DISEASE
     Route: 048
     Dates: start: 20080101

REACTIONS (4)
  - DRUG INEFFECTIVE [None]
  - BARRETT'S OESOPHAGUS [None]
  - INTENTIONAL DRUG MISUSE [None]
  - DYSPEPSIA [None]
